FAERS Safety Report 6591466-X (Version None)
Quarter: 2010Q1

REPORT INFORMATION
  Report Type: 
  Country: None (occurrence: None)
  Receive Date: 20100219
  Receipt Date: 20100209
  Transmission Date: 20100710
  Serious: Yes (Hospitalization, Other)
  Sender: FDA-Public Use
  Company Number: US-ELI_LILLY_AND_COMPANY-US200911004794

PATIENT
  Sex: Female

DRUGS (8)
  1. FORTEO [Suspect]
     Dosage: 20 UG, DAILY (1/D)
  2. ENBREL [Concomitant]
     Indication: ARTHRITIS
     Dosage: UNK, WEEKLY (1/W)
  3. ENTOCORT EC [Concomitant]
     Dosage: 3 CAPS/DAY
  4. ACIPHEX [Concomitant]
     Dosage: UNK, 2/D
  5. VITAMINS [Concomitant]
  6. HERBAL PREPARATION [Concomitant]
  7. CALCIUM [Concomitant]
  8. FOSAMAX [Concomitant]

REACTIONS (10)
  - ADRENAL INSUFFICIENCY [None]
  - BLOOD PRESSURE INCREASED [None]
  - DIZZINESS [None]
  - FASTING [None]
  - HYPOAESTHESIA ORAL [None]
  - LOSS OF CONSCIOUSNESS [None]
  - MEMORY IMPAIRMENT [None]
  - MUSCULAR WEAKNESS [None]
  - THYROID DISORDER [None]
  - VISION BLURRED [None]
